FAERS Safety Report 15067061 (Version 6)
Quarter: 2018Q4

REPORT INFORMATION
  Report Type: Report from Study
  Country: US (occurrence: US)
  Receive Date: 20180626
  Receipt Date: 20181205
  Transmission Date: 20190204
  Serious: Yes (Other)
  Sender: FDA-Public Use
  Company Number: PHHY2018US013484

PATIENT
  Age: 72 Year
  Sex: Female
  Weight: 68.9 kg

DRUGS (1)
  1. LAMPRENE [Suspect]
     Active Substance: CLOFAZIMINE
     Indication: MYCOBACTERIUM AVIUM COMPLEX INFECTION
     Dosage: 100 MG, QD
     Route: 048
     Dates: start: 20180521, end: 20180601

REACTIONS (26)
  - Dyspnoea [Recovered/Resolved]
  - Vomiting [Recovered/Resolved]
  - Polycythaemia [Not Recovered/Not Resolved]
  - Lung disorder [Not Recovered/Not Resolved]
  - Eosinophil percentage increased [Recovered/Resolved]
  - Synovitis [Not Recovered/Not Resolved]
  - Headache [Recovered/Resolved]
  - Blood immunoglobulin G decreased [Recovered/Resolved]
  - Cough [Recovered/Resolved]
  - Foot deformity [Not Recovered/Not Resolved]
  - Weight decreased [Recovered/Resolved]
  - Haematocrit increased [Not Recovered/Not Resolved]
  - Blood test abnormal [Not Recovered/Not Resolved]
  - Haemoglobin increased [Not Recovered/Not Resolved]
  - Hypogammaglobulinaemia [Not Recovered/Not Resolved]
  - Pyrexia [Recovered/Resolved]
  - Bronchiectasis [Not Recovered/Not Resolved]
  - Rheumatoid factor [Not Recovered/Not Resolved]
  - Complement factor C3 increased [Not Recovered/Not Resolved]
  - Dysphagia [Not Recovered/Not Resolved]
  - Alanine aminotransferase increased [Not Recovered/Not Resolved]
  - Night sweats [Recovered/Resolved]
  - Dry mouth [Not Recovered/Not Resolved]
  - Oedema [Not Recovered/Not Resolved]
  - Oral fungal infection [Not Recovered/Not Resolved]
  - Aspartate aminotransferase increased [Not Recovered/Not Resolved]

NARRATIVE: CASE EVENT DATE: 20180521
